FAERS Safety Report 6618886-9 (Version None)
Quarter: 2010Q1

REPORT INFORMATION
  Report Type: 
  Country: None (occurrence: None)
  Receive Date: 20100308
  Receipt Date: 20100222
  Transmission Date: 20100710
  Serious: Yes (Other)
  Sender: FDA-Public Use
  Company Number: GB-MYLANLABS-2010S1003138

PATIENT
  Age: 45 Year
  Sex: Female
  Weight: 43 kg

DRUGS (8)
  1. FENTANYL [Suspect]
     Indication: SEDATION
     Route: 042
  2. ACETAMINOPHEN AND CODEINE PHOSPHATE [Suspect]
  3. CITANEST OCTAPRESS [Suspect]
     Indication: LOCAL ANAESTHESIA
  4. CITANEST OCTAPRESS [Suspect]
  5. DALACIN /00166002/ [Concomitant]
  6. MIDAZOLAM HCL [Concomitant]
  7. WARFARIN SODIUM [Concomitant]
  8. TPN ELECTROLYTES IN PLASTIC CONTAINER [Concomitant]

REACTIONS (1)
  - METHAEMOGLOBINAEMIA [None]
